FAERS Safety Report 24442475 (Version 2)
Quarter: 2024Q4

REPORT INFORMATION
  Report Type: Spontaneous
  Country: FR (occurrence: FR)
  Receive Date: 20241016
  Receipt Date: 20241017
  Transmission Date: 20250114
  Serious: No
  Sender: ROCHE
  Company Number: FR-ROCHE-3548883

PATIENT
  Age: 22 Year
  Sex: Male
  Weight: 130.0 kg

DRUGS (4)
  1. HEMLIBRA [Suspect]
     Active Substance: EMICIZUMAB-KXWH
     Indication: Factor VIII deficiency
     Dosage: START OF TREATMENT: SEVERAL MONTHS AGO. THIS WAS THE 3RD INJECTION. (THE FIRST 2 INJECTIONS WERE ADM
     Route: 042
     Dates: start: 20240402
  2. HEMLIBRA [Suspect]
     Active Substance: EMICIZUMAB-KXWH
     Dosage: LOADING DOSES
     Route: 058
     Dates: start: 20240409
  3. HEMLIBRA [Suspect]
     Active Substance: EMICIZUMAB-KXWH
     Dosage: LOADING DOSES
     Route: 058
     Dates: start: 20240416
  4. NOVOSEVEN [Concomitant]
     Active Substance: COAGULATION FACTOR VIIA RECOMBINANT HUMAN

REACTIONS (3)
  - Off label use [Unknown]
  - No adverse event [Unknown]
  - Incorrect route of product administration [Unknown]
